FAERS Safety Report 5465061-X (Version None)
Quarter: 2007Q3

REPORT INFORMATION
  Report Type: 
  Country: None (occurrence: None)
  Receive Date: 20070820
  Receipt Date: 20070518
  Transmission Date: 20080115
  Serious: No
  Sender: FDA-Public Use
  Company Number: TPA2007A01117

PATIENT
  Age: 73 Year
  Sex: Female
  Weight: 82.5547 kg

DRUGS (11)
  1. ROZEREM [Suspect]
     Indication: INSOMNIA
     Dosage: 8 MG, HS, PER ORAL
     Route: 048
     Dates: start: 20070301, end: 20070401
  2. FOLIC ACID [Concomitant]
  3. VYTORIN [Concomitant]
  4. COZAAR [Concomitant]
  5. MINIPRESS [Concomitant]
  6. ASPIRIN [Concomitant]
  7. MULTIVITAMIN (ERGOCALCIFEROL, ASCORBIC ACID, FOLIC ACID, THIAMINE HYDR [Concomitant]
  8. VITAMIN B6 [Concomitant]
  9. UNK PAIN MEDICATION (ALL OTHER THERAPEUTIC PRODUCTS) [Concomitant]
  10. OXYCODONE HCL [Concomitant]
  11. SULFMETH/TRIMETH DS (SULFAMETHOXAZOLE, TRIMETHOPRIM) [Concomitant]

REACTIONS (2)
  - DRUG INEFFECTIVE [None]
  - POOR QUALITY SLEEP [None]
